FAERS Safety Report 24358694 (Version 1)
Quarter: 2024Q3

REPORT INFORMATION
  Report Type: Spontaneous
  Country: US (occurrence: None)
  Receive Date: 20240924
  Receipt Date: 20240924
  Transmission Date: 20241016
  Serious: Yes (Disabling, Other)
  Sender: Public
  Company Number: None

PATIENT
  Age: 94 Year
  Sex: Female
  Weight: 51.3 kg

DRUGS (11)
  1. TOLTERODINE [Suspect]
     Active Substance: TOLTERODINE
     Indication: Nocturia
     Dosage: 1 CAPSULE AT BEDTIME ORAL
     Route: 048
     Dates: start: 20240827, end: 20240920
  2. TOLTERODINE [Suspect]
     Active Substance: TOLTERODINE
     Indication: Micturition urgency
  3. DICYCLOMINE [Suspect]
     Active Substance: DICYCLOMINE HYDROCHLORIDE
  4. ROPINIROLE [Concomitant]
     Active Substance: ROPINIROLE
  5. LEVOTHYROXINE [Concomitant]
     Active Substance: LEVOTHYROXINE\LEVOTHYROXINE SODIUM
  6. VENLAFAXINE [Concomitant]
     Active Substance: VENLAFAXINE HYDROCHLORIDE
  7. GABAPENTIN [Concomitant]
     Active Substance: GABAPENTIN
  8. LOPERAMIDE [Concomitant]
     Active Substance: LOPERAMIDE
  9. QUETIAPINE [Concomitant]
     Active Substance: QUETIAPINE
  10. FAMOTIDINE [Concomitant]
     Active Substance: FAMOTIDINE
  11. VITAMIN D NOS [Concomitant]
     Active Substance: CHOLECALCIFEROL\ERGOCALCIFEROL

REACTIONS (19)
  - Dementia [None]
  - Parkinson^s disease [None]
  - Gait inability [None]
  - Hypophagia [None]
  - Confusional state [None]
  - Urinary tract infection [None]
  - Fall [None]
  - Contusion [None]
  - Joint swelling [None]
  - Dizziness [None]
  - Hangover [None]
  - Dysstasia [None]
  - Wheelchair user [None]
  - Somnolence [None]
  - Amnesia [None]
  - Aphasia [None]
  - Thinking abnormal [None]
  - Therapy interrupted [None]
  - Asthenia [None]

NARRATIVE: CASE EVENT DATE: 20240828
